FAERS Safety Report 12675076 (Version 1)
Quarter: 2016Q3

REPORT INFORMATION
  Report Type: Spontaneous
  Country: JP (occurrence: JP)
  Receive Date: 20160822
  Receipt Date: 20160822
  Transmission Date: 20161109
  Serious: Yes (Hospitalization, Other)
  Sender: FDA-Public Use
  Company Number: JP-TAKEDA-2016TUS014696

PATIENT
  Age: 82 Year
  Sex: Male
  Weight: 74 kg

DRUGS (8)
  1. FEBURIC [Suspect]
     Active Substance: FEBUXOSTAT
     Indication: HYPERURICAEMIA
     Dosage: UNK
     Route: 048
     Dates: start: 20140109, end: 20141119
  2. NU-LOTAN [Concomitant]
     Active Substance: LOSARTAN POTASSIUM
     Indication: HYPERTENSION
     Dosage: 50 MG, QD
     Route: 048
  3. GLUFAST [Concomitant]
     Active Substance: MITIGLINIDE
     Indication: DIABETES MELLITUS
     Dosage: 10 MG, QD
     Route: 048
  4. AMLODIN OD [Concomitant]
     Active Substance: AMLODIPINE BESYLATE
     Indication: HYPERTENSION
     Dosage: 5 MG, QD
     Route: 048
  5. NITOROL [Concomitant]
     Active Substance: ISOSORBIDE DINITRATE
     Indication: CARDIAC FAILURE
     Dosage: 5 MG, QD
     Route: 048
  6. LASIX [Concomitant]
     Active Substance: FUROSEMIDE
     Indication: HYPERTENSION
     Dosage: 20 MG, QD
     Route: 048
  7. WARFARIN [Concomitant]
     Active Substance: WARFARIN
     Indication: CARDIAC FAILURE
     Dosage: 2.5 MG, TID
     Route: 048
  8. PREMINENT [Concomitant]
     Active Substance: HYDROCHLOROTHIAZIDE\LOSARTAN POTASSIUM
     Indication: HYPERTENSION
     Dosage: 5 MG, TID
     Route: 048

REACTIONS (1)
  - Cardiac failure congestive [Recovering/Resolving]

NARRATIVE: CASE EVENT DATE: 20141022
